FAERS Safety Report 5781818-X (Version None)
Quarter: 2008Q2

REPORT INFORMATION
  Report Type: 
  Country: None (occurrence: None)
  Receive Date: 20080618
  Receipt Date: 20080609
  Transmission Date: 20081010
  Serious: Yes (Other)
  Sender: FDA-Public Use
  Company Number: 08H-167-0314400-00

PATIENT
  Sex: Male

DRUGS (5)
  1. PROPOFOL [Suspect]
     Indication: GENERAL ANAESTHESIA
     Dosage: 200 MG, ONCE
  2. 0.5% LEVOBUPIVACAINE (LEVOBUPIVACAINE) [Suspect]
     Indication: NERVE BLOCK
     Dosage: 30 ML, PERINEURAL
     Route: 053
  3. OXYGEN (OXYGEN) [Concomitant]
  4. SEVOFLURANE [Concomitant]
  5. FENTANYL [Suspect]
     Indication: GENERAL ANAESTHESIA
     Dosage: 50 MCG, ONCE; ONCE

REACTIONS (8)
  - DYSARTHRIA [None]
  - FACIAL PARESIS [None]
  - HYPOAESTHESIA [None]
  - HYPOGLOSSAL NERVE DISORDER [None]
  - MIGRAINE WITH AURA [None]
  - MOBILITY DECREASED [None]
  - MUSCULAR WEAKNESS [None]
  - POST PROCEDURAL COMPLICATION [None]
